FAERS Safety Report 16867165 (Version 2)
Quarter: 2020Q1

REPORT INFORMATION
  Report Type: Spontaneous
  Country: GB (occurrence: GB)
  Receive Date: 20190930
  Receipt Date: 20200124
  Transmission Date: 20200409
  Serious: Yes (Death, Hospitalization)
  Sender: FDA-Public Use
  Company Number: GB-TEVA-2019-GB-1113949

PATIENT
  Age: 57 Year
  Sex: Male

DRUGS (5)
  1. RAMIPRIL. [Concomitant]
     Active Substance: RAMIPRIL
     Indication: HYPERTENSION
  2. RISPERIDONE. [Suspect]
     Active Substance: RISPERIDONE
     Indication: SEIZURE
     Dosage: 12 MG PER DAY
     Route: 065
     Dates: start: 2004, end: 2019
  3. AMLODIPINE [Concomitant]
     Active Substance: AMLODIPINE BESYLATE
     Indication: HYPERTENSION
  4. RISPERIDONE. [Suspect]
     Active Substance: RISPERIDONE
     Dates: start: 2019
  5. ZARONTIN [Concomitant]
     Active Substance: ETHOSUXIMIDE
     Dosage: 780 MG PER DAY

REACTIONS (13)
  - Hyperhidrosis [Fatal]
  - Gynaecomastia [Fatal]
  - Feeling hot [Fatal]
  - Pollakiuria [Fatal]
  - Insomnia [Fatal]
  - Dyspnoea [Fatal]
  - Somnolence [Fatal]
  - Lung neoplasm malignant [Fatal]
  - Abnormal weight gain [Fatal]
  - Rash pruritic [Fatal]
  - Seizure [Fatal]
  - Colon cancer [Fatal]
  - Dyskinesia [Fatal]

NARRATIVE: CASE EVENT DATE: 2017
